FAERS Safety Report 8017047-9 (Version None)
Quarter: 2012Q1

REPORT INFORMATION
  Report Type: 
  Country: None (occurrence: None)
  Receive Date: 20120102
  Receipt Date: 20111226
  Transmission Date: 20120608
  Serious: Yes (Disabling, Other)
  Sender: FDA-Public Use
  Company Number: JP-ROCHE-GNE297637

PATIENT
  Sex: Male

DRUGS (10)
  1. RANIBIZUMAB [Suspect]
     Indication: AGE-RELATED MACULAR DEGENERATION
     Dosage: 0.05 ML, UNK
     Route: 050
     Dates: start: 20090604
  2. BEZATOL [Concomitant]
     Indication: PRODUCT USED FOR UNKNOWN INDICATION
     Dosage: UNK
  3. ACECOL [Concomitant]
     Indication: PRODUCT USED FOR UNKNOWN INDICATION
     Dosage: UNK
  4. AMLODINE [Concomitant]
     Indication: PRODUCT USED FOR UNKNOWN INDICATION
     Dosage: UNK
  5. AMARYL [Concomitant]
     Indication: PRODUCT USED FOR UNKNOWN INDICATION
     Dosage: UNK
  6. RANIBIZUMAB [Suspect]
     Dosage: 0.05 ML, UNK
     Route: 050
     Dates: start: 20090702
  7. GATIFLOXACIN [Concomitant]
     Dosage: UNK
     Dates: end: 20090801
  8. GATIFLOXACIN [Concomitant]
     Indication: PRODUCT USED FOR UNKNOWN INDICATION
     Dosage: UNK
     Dates: start: 20090601
  9. RANIBIZUMAB [Suspect]
     Dosage: 0.05 ML, UNK
     Route: 050
     Dates: start: 20090806
  10. ANPLAG [Concomitant]
     Indication: PRODUCT USED FOR UNKNOWN INDICATION
     Dosage: UNK

REACTIONS (5)
  - VITREOUS HAEMORRHAGE [None]
  - INJURY [None]
  - RETINAL HAEMORRHAGE [None]
  - DETACHMENT OF RETINAL PIGMENT EPITHELIUM [None]
  - RETINAL PIGMENT EPITHELIAL TEAR [None]
